FAERS Safety Report 14882337 (Version 1)
Quarter: 2018Q2

REPORT INFORMATION
  Report Type: Report from Study
  Country: ZA (occurrence: ZA)
  Receive Date: 20180511
  Receipt Date: 20180511
  Transmission Date: 20180711
  Serious: Yes (Death, Other)
  Sender: FDA-Public Use
  Company Number: ZA-AMGEN-ZAFSL2018063417

PATIENT
  Age: 67 Year
  Sex: Male

DRUGS (2)
  1. ARANESP [Suspect]
     Active Substance: DARBEPOETIN ALFA
     Indication: CHRONIC KIDNEY DISEASE
     Dosage: 40 MUG, Q2WK
     Route: 058
     Dates: start: 201609, end: 201805
  2. VENOFER [Concomitant]
     Active Substance: IRON SUCROSE
     Dosage: 100 MG, UNK (TWICE PER MONTH)
     Route: 065
     Dates: end: 20180117

REACTIONS (1)
  - Death [Fatal]

NARRATIVE: CASE EVENT DATE: 201805
